FAERS Safety Report 24242897 (Version 2)
Quarter: 2024Q4

REPORT INFORMATION
  Report Type: Report from Study
  Country: PK (occurrence: PK)
  Receive Date: 20240823
  Receipt Date: 20241018
  Transmission Date: 20250115
  Serious: Yes (Death)
  Sender: ROCHE
  Company Number: PK-ROCHE-10000056107

PATIENT
  Age: 68 Year
  Sex: Male

DRUGS (3)
  1. MABTHERA [Suspect]
     Active Substance: RITUXIMAB
     Indication: Follicular lymphoma
     Route: 058
     Dates: start: 20230905, end: 20240518
  2. MABTHERA [Suspect]
     Active Substance: RITUXIMAB
     Route: 058
  3. MABTHERA [Suspect]
     Active Substance: RITUXIMAB
     Route: 058

REACTIONS (2)
  - Hypertension [Fatal]
  - Asthenia [Fatal]

NARRATIVE: CASE EVENT DATE: 20240716
